FAERS Safety Report 21208169 (Version 1)
Quarter: 2022Q3

REPORT INFORMATION
  Report Type: Spontaneous
  Country: MX (occurrence: None)
  Receive Date: 20220812
  Receipt Date: 20220812
  Transmission Date: 20221026
  Serious: Yes (Other)
  Sender: FDA-Public Use
  Company Number: MX-ROCHE-3158989

PATIENT
  Age: 47 Year
  Sex: Female
  Weight: 50 kg

DRUGS (5)
  1. TRASTUZUMAB [Suspect]
     Active Substance: TRASTUZUMAB
     Indication: Breast cancer
     Dosage: DOSE AND FREQUENCY WERE NOT INFORMED
     Route: 065
  2. PACLITAXEL [Concomitant]
     Active Substance: PACLITAXEL
  3. TAMOXIFEN [Concomitant]
     Active Substance: TAMOXIFEN
  4. VINORELBINE [Concomitant]
     Active Substance: VINORELBINE TARTRATE
  5. ZOLEDRONIC ACID [Concomitant]
     Active Substance: ZOLEDRONIC ACID
     Dosage: DOSE AND FREQUENCY WERE NOT INFORMED.

REACTIONS (5)
  - Nervous system disorder [Recovered/Resolved]
  - Metastases to bone [Unknown]
  - Metastases to central nervous system [Unknown]
  - Metastases to the mediastinum [Unknown]
  - Benign neoplasm [Unknown]

NARRATIVE: CASE EVENT DATE: 20201001
